FAERS Safety Report 5261080-7 (Version None)
Quarter: 2007Q1

REPORT INFORMATION
  Report Type: 
  Country: None (occurrence: None)
  Receive Date: 20070309
  Receipt Date: 20070228
  Transmission Date: 20070707
  Serious: Yes (Death, Other)
  Sender: FDA-Public Use
  Company Number: US-PFIZER INC-2006088632

PATIENT
  Sex: Female
  Weight: 64.9 kg

DRUGS (14)
  1. NEURONTIN [Suspect]
     Indication: PAIN
  2. TOPROL-XL [Concomitant]
  3. PROTONIX [Concomitant]
  4. CLONIDINE [Concomitant]
  5. CARISOPRODOL [Concomitant]
  6. LORAZEPAM [Concomitant]
  7. HYDROCODONE [Concomitant]
  8. OXYCODONE [Concomitant]
  9. FLUOXETINE [Concomitant]
  10. LOVASTATIN [Concomitant]
  11. FOSAMAX [Concomitant]
  12. PREVACID [Concomitant]
  13. NITROQUICK [Concomitant]
  14. MIACALCIN [Concomitant]

REACTIONS (3)
  - ANXIETY [None]
  - COMPLETED SUICIDE [None]
  - SUICIDAL IDEATION [None]
